FAERS Safety Report 13463215 (Version 1)
Quarter: 2017Q2

REPORT INFORMATION
  Report Type: Spontaneous
  Country: JP (occurrence: JP)
  Receive Date: 20170420
  Receipt Date: 20170420
  Transmission Date: 20170830
  Serious: Yes (Hospitalization)
  Sender: FDA-Public Use
  Company Number: JP-BAYER-2017-047954

PATIENT
  Age: 61 Year
  Sex: Male
  Weight: 49.9 kg

DRUGS (4)
  1. CONIEL [Concomitant]
     Active Substance: BENIDIPINE HYDROCHLORIDE
     Dosage: 2 MG, QD
     Route: 048
     Dates: start: 20170303
  2. UBIDECARENONE [Concomitant]
     Active Substance: UBIDECARENONE
     Dosage: 30 MG, QD
     Route: 048
     Dates: start: 20170128
  3. PILSICAINIDE HYDROCHLORIDE [Concomitant]
     Active Substance: PILSICAINIDE HYDROCHLORIDE
     Dosage: 50 MG, QD
     Route: 048
     Dates: start: 20170303
  4. BAYASPIRIN 100 MG [Suspect]
     Active Substance: ASPIRIN
     Indication: TRANSIENT ISCHAEMIC ATTACK
     Dosage: 100 MG, QD
     Route: 048
     Dates: start: 201701

REACTIONS (7)
  - Muscle tightness [None]
  - Dry skin [None]
  - Musculoskeletal stiffness [Unknown]
  - Temperature intolerance [Unknown]
  - Chest discomfort [None]
  - Myalgia [None]
  - Peripheral coldness [Unknown]

NARRATIVE: CASE EVENT DATE: 2017
